FAERS Safety Report 26095021 (Version 1)
Quarter: 2025Q4

REPORT INFORMATION
  Report Type: Report from Study
  Country: CA (occurrence: CA)
  Receive Date: 20251127
  Receipt Date: 20251127
  Transmission Date: 20260118
  Serious: Yes (Other)
  Sender: ABBVIE
  Company Number: CA-ABBVIE-6555824

PATIENT
  Age: 54 Year
  Sex: Male

DRUGS (1)
  1. SKYRIZI [Suspect]
     Active Substance: RISANKIZUMAB-RZAA
     Indication: Crohn^s disease
     Route: 058

REACTIONS (16)
  - Stoma creation [Unknown]
  - Arthralgia [Unknown]
  - Rectal discharge [Unknown]
  - Varicose vein [Unknown]
  - Crohn^s disease [Not Recovered/Not Resolved]
  - Back pain [Unknown]
  - Pain [Unknown]
  - Musculoskeletal disorder [Unknown]
  - Vision blurred [Unknown]
  - Eye discharge [Unknown]
  - Genital cyst [Unknown]
  - Endodontic procedure [Unknown]
  - Gingivitis [Unknown]
  - Anal haemorrhage [Unknown]
  - Post procedural complication [Unknown]
  - Gastrointestinal stoma complication [Unknown]

NARRATIVE: CASE EVENT DATE: 20250601
